FAERS Safety Report 11777304 (Version 1)
Quarter: 2015Q4

REPORT INFORMATION
  Report Type: Spontaneous
  Country: US (occurrence: US)
  Receive Date: 20151125
  Receipt Date: 20151125
  Transmission Date: 20160304
  Serious: No
  Sender: FDA-Public Use
  Company Number: US-MALLINCKRODT-T201502028

PATIENT
  Sex: Male

DRUGS (6)
  1. OXYBUTYNIN [Concomitant]
     Active Substance: OXYBUTYNIN
  2. GABLOFEN [Suspect]
     Active Substance: BACLOFEN
     Indication: MUSCLE SPASTICITY
     Dosage: 3 MCG/DAY
     Route: 037
  3. FENTANYL. [Concomitant]
     Active Substance: FENTANYL
  4. KEPPRA [Concomitant]
     Active Substance: LEVETIRACETAM
  5. ATIVAN [Concomitant]
     Active Substance: LORAZEPAM
  6. VIMPAT [Concomitant]
     Active Substance: LACOSAMIDE

REACTIONS (4)
  - Subarachnoid haemorrhage [Recovered/Resolved]
  - Muscle spasticity [Recovered/Resolved]
  - Muscle spasms [Unknown]
  - Device occlusion [Recovered/Resolved]
